FAERS Safety Report 10401529 (Version 1)
Quarter: 2014Q3

REPORT INFORMATION
  Report Type: Spontaneous
  Country: CA (occurrence: CA)
  Receive Date: 20140822
  Receipt Date: 20140822
  Transmission Date: 20150326
  Serious: Yes (Other)
  Sender: FDA-Public Use
  Company Number: CA-AMGEN-CANSP2014063235

PATIENT
  Age: 76 Year
  Sex: Female

DRUGS (6)
  1. PREVACID [Concomitant]
     Active Substance: LANSOPRAZOLE
     Dosage: UNK UNK, BID
  2. PROLIA [Suspect]
     Active Substance: DENOSUMAB
     Indication: OSTEOPOROSIS
     Dosage: 60 MG, Q6MO
     Route: 058
     Dates: start: 20131204
  3. CRESTOR [Concomitant]
     Active Substance: ROSUVASTATIN CALCIUM
     Indication: BLOOD CHOLESTEROL
     Dosage: UNK
  4. VITAMIN D                          /00107901/ [Concomitant]
     Active Substance: ERGOCALCIFEROL
     Dosage: UNK
  5. CALCIUM [Concomitant]
     Active Substance: CALCIUM
     Dosage: UNK
  6. AVELOX                             /01278901/ [Concomitant]

REACTIONS (12)
  - Increased upper airway secretion [Unknown]
  - Aphonia [Unknown]
  - Inner ear disorder [Unknown]
  - Multiple allergies [Recovering/Resolving]
  - Sinusitis [Recovered/Resolved]
  - Labyrinthitis [Unknown]
  - Nausea [Unknown]
  - Asthenia [Unknown]
  - Sleep disorder due to general medical condition, insomnia type [Unknown]
  - Oropharyngeal pain [Unknown]
  - Viral infection [Unknown]
  - Cough [Unknown]

NARRATIVE: CASE EVENT DATE: 20140615
